FAERS Safety Report 17252227 (Version 1)
Quarter: 2020Q1

REPORT INFORMATION
  Report Type: Spontaneous
  Country: US (occurrence: US)
  Receive Date: 20200108
  Receipt Date: 20200108
  Transmission Date: 20200409
  Serious: No
  Sender: FDA-Public Use
  Company Number: None

PATIENT
  Age: 7 Year
  Sex: Male
  Weight: 21.6 kg

DRUGS (2)
  1. TYLENOL [Concomitant]
     Active Substance: ACETAMINOPHEN
  2. OSELTAMIVIR PHOSPHATE FOR ORAL SUSPENSION [Suspect]
     Active Substance: OSELTAMIVIR PHOSPHATE
     Indication: INFLUENZA LIKE ILLNESS
     Dosage: ?          QUANTITY:7.5 ML;?
     Route: 048
     Dates: start: 20200107, end: 20200107

REACTIONS (5)
  - Hallucination [None]
  - Confusional state [None]
  - Crying [None]
  - Tremor [None]
  - Delirium [None]

NARRATIVE: CASE EVENT DATE: 20200107
